FAERS Safety Report 6822145-9 (Version None)
Quarter: 2010Q3

REPORT INFORMATION
  Report Type: 
  Country: None (occurrence: None)
  Receive Date: 20100702
  Receipt Date: 20100623
  Transmission Date: 20110219
  Serious: Yes (Other)
  Sender: FDA-Public Use
  Company Number: WAES 1006USA04281

PATIENT
  Age: 39 Year
  Sex: Male

DRUGS (9)
  1. ZETIA [Suspect]
     Indication: HYPERCHOLESTEROLAEMIA
     Dosage: 10 MG PO
     Dates: start: 20080724, end: 20080912
  2. JUNCHO-TO [Concomitant]
  3. CARBAMAZEPINE [Concomitant]
  4. FERROUSSO4 [Concomitant]
  5. NITRAZEPAM [Concomitant]
  6. PANTETHINE [Concomitant]
  7. PHENOBARBITAL [Concomitant]
  8. PHENYTOIN [Concomitant]
  9. TIQUIZIUM BROMIDE [Concomitant]

REACTIONS (2)
  - INSOMNIA [None]
  - STATUS EPILEPTICUS [None]
